FAERS Safety Report 24140440 (Version 1)
Quarter: 2024Q3

REPORT INFORMATION
  Report Type: Other
  Country: GB (occurrence: GB)
  Receive Date: 20240726
  Receipt Date: 20240726
  Transmission Date: 20241016
  Serious: Yes (Other)
  Sender: AUROBINDO
  Company Number: GB-AUROBINDO-AUR-APL-2013-06018

PATIENT
  Age: 50 Year
  Sex: Male

DRUGS (5)
  1. QUETIAPINE [Suspect]
     Active Substance: QUETIAPINE
     Indication: Major depression
     Dosage: 600 MG,UNK,
     Route: 048
     Dates: start: 20120416
  2. DIAZEPAM [Concomitant]
     Active Substance: DIAZEPAM
     Indication: Product used for unknown indication
     Dosage: 5 MG,TWO TIMES A DAY,
     Route: 048
     Dates: start: 201201
  3. OMEPRAZOLE [Concomitant]
     Active Substance: OMEPRAZOLE
     Indication: Product used for unknown indication
     Dosage: 20 MG,ONCE A DAY,
     Route: 048
     Dates: start: 200506
  4. SILDENAFIL [Concomitant]
     Active Substance: SILDENAFIL
     Indication: Erectile dysfunction
     Dosage: 100 MG,UNK,
     Route: 048
     Dates: start: 200611
  5. VENLAFAXINE [Concomitant]
     Active Substance: VENLAFAXINE HYDROCHLORIDE
     Indication: Depression
     Dosage: 150 MG,ONCE A DAY,
     Route: 048
     Dates: start: 201203

REACTIONS (1)
  - Lipids increased [Unknown]

NARRATIVE: CASE EVENT DATE: 20130101
